FAERS Safety Report 8488529-0 (Version None)
Quarter: 2012Q3

REPORT INFORMATION
  Report Type: 
  Country: None (occurrence: None)
  Receive Date: 20120705
  Receipt Date: 20120627
  Transmission Date: 20120928
  Serious: Yes (Hospitalization)
  Sender: FDA-Public Use
  Company Number: PL-UCBSA-060693

PATIENT
  Age: 11 Year
  Sex: Male
  Weight: 23 kg

DRUGS (3)
  1. KEPPRA [Suspect]
     Indication: EPILEPSY
     Dosage: 2 X 2.5 ML
     Dates: start: 20080401, end: 20080414
  2. VALPROATE SODIUM [Concomitant]
     Indication: EPILEPSY
     Dosage: 600 ONCE DAILY
     Route: 048
  3. LAMITRIX [Concomitant]
     Route: 048

REACTIONS (1)
  - MYOCLONIC EPILEPSY [None]
